FAERS Safety Report 8533289-8 (Version None)
Quarter: 2012Q3

REPORT INFORMATION
  Report Type: 
  Country: None (occurrence: None)
  Receive Date: 20120724
  Receipt Date: 20120717
  Transmission Date: 20120928
  Serious: No
  Sender: FDA-Public Use
  Company Number: US-B.I. PHARMACEUTICALS,INC./RIDGEFIELD-2012-BP-15930BP

PATIENT
  Age: 61 Year
  Sex: Female

DRUGS (3)
  1. SPIRIVA [Suspect]
     Indication: ASTHMA
     Dosage: 18 MCG
     Route: 055
     Dates: start: 20000101, end: 20120712
  2. XOPENEX [Concomitant]
     Indication: ASTHMA
     Route: 055
     Dates: start: 20000101
  3. ADVAIR DISKUS 100/50 [Concomitant]
     Indication: ASTHMA
     Route: 055
     Dates: start: 20000101

REACTIONS (2)
  - DYSPNOEA [None]
  - CHEST DISCOMFORT [None]
